FAERS Safety Report 17216872 (Version 2)
Quarter: 2020Q1

REPORT INFORMATION
  Report Type: Spontaneous
  Country: NL (occurrence: NL)
  Receive Date: 20191231
  Receipt Date: 20200114
  Transmission Date: 20200409
  Serious: Yes (Hospitalization, Other)
  Sender: FDA-Public Use
  Company Number: NL-AUROBINDO-AUR-APL-2019-108409

PATIENT
  Age: 60 Year
  Sex: Female

DRUGS (8)
  1. NAPROXEN. [Suspect]
     Active Substance: NAPROXEN
     Indication: ARTHRALGIA
     Dosage: 500 MILLIGRAM, ONCE A DAY
     Route: 065
  2. DULOXETINE. [Concomitant]
     Active Substance: DULOXETINE
     Indication: PRODUCT USED FOR UNKNOWN INDICATION
     Dosage: 30-60 MG BID
     Route: 065
  3. TRIHEXYPHENIDYL [Concomitant]
     Active Substance: TRIHEXYPHENIDYL
     Indication: PRODUCT USED FOR UNKNOWN INDICATION
     Dosage: 2 MILLIGRAM, ONCE A DAY
     Route: 065
  4. METFORMIN [Concomitant]
     Active Substance: METFORMIN HYDROCHLORIDE
     Indication: TYPE 2 DIABETES MELLITUS
     Dosage: 500 MILLIGRAM, TWO TIMES A DAY
     Route: 065
  5. LORAZEPAM. [Concomitant]
     Active Substance: LORAZEPAM
     Indication: BIPOLAR I DISORDER
     Dosage: 2 MILLIGRAM, DAILY
     Route: 065
  6. LITHIUM CARBONATE. [Interacting]
     Active Substance: LITHIUM CARBONATE
     Indication: BIPOLAR I DISORDER
     Dosage: 600 MILLIGRAM, DAILY (RECEIVING FROM 20 YEARS)
     Route: 065
  7. PALIPERIDONE. [Concomitant]
     Active Substance: PALIPERIDONE
     Indication: BIPOLAR I DISORDER
     Dosage: 6 MILLIGRAM, ONCE A DAY
     Route: 065
  8. OMEPRAZOLE. [Concomitant]
     Active Substance: OMEPRAZOLE
     Indication: PRODUCT USED FOR UNKNOWN INDICATION
     Dosage: 20 MILLIGRAM, AS NEEDED
     Route: 065

REACTIONS (35)
  - Incoherent [Recovered/Resolved]
  - Disorientation [Recovered/Resolved]
  - Restlessness [Recovered/Resolved]
  - Diabetes insipidus [Recovered/Resolved]
  - Toxicity to various agents [Recovered/Resolved]
  - Wheezing [Recovered/Resolved]
  - Renal impairment [Recovered/Resolved]
  - Fatigue [Recovered/Resolved]
  - Pyrexia [Recovered/Resolved]
  - Hallucination, auditory [Recovered/Resolved]
  - Urinary incontinence [Recovered/Resolved]
  - Suicidal ideation [Recovered/Resolved]
  - Dysphemia [Recovered/Resolved]
  - Drug interaction [Recovered/Resolved]
  - Asthenia [Recovered/Resolved]
  - Gait disturbance [Recovered/Resolved]
  - Anxiety [Recovered/Resolved]
  - Poor quality sleep [Recovered/Resolved]
  - Apathy [Recovered/Resolved]
  - Psychomotor skills impaired [Recovered/Resolved]
  - Polydipsia [Recovered/Resolved]
  - Mania [Recovered/Resolved]
  - Abdominal pain [Recovered/Resolved]
  - Neuropsychiatric symptoms [Recovered/Resolved]
  - Tachycardia [Recovered/Resolved]
  - Disturbance in attention [Recovered/Resolved]
  - Dysarthria [Recovered/Resolved]
  - Morose [Recovered/Resolved]
  - Polyuria [Recovered/Resolved]
  - Serotonin syndrome [Recovered/Resolved]
  - Renal failure [Recovered/Resolved]
  - Tachypnoea [Recovered/Resolved]
  - Confusional state [Recovered/Resolved]
  - Dizziness [Recovered/Resolved]
  - Neuroleptic malignant syndrome [Recovered/Resolved]
